FAERS Safety Report 8082447-8 (Version None)
Quarter: 2012Q1

REPORT INFORMATION
  Report Type: 
  Country: None (occurrence: None)
  Receive Date: 20120127
  Receipt Date: 20110215
  Transmission Date: 20120608
  Serious: No
  Sender: FDA-Public Use
  Company Number: US-ABBOTT-11P-163-0706417-00

PATIENT
  Sex: Female
  Weight: 97.61 kg

DRUGS (8)
  1. LOVASTATIN [Concomitant]
     Indication: BLOOD CHOLESTEROL INCREASED
  2. LEVOTHYROXINE SODIUM [Concomitant]
     Indication: HYPOTHYROIDISM
  3. ZYRTEC [Concomitant]
     Indication: HYPERSENSITIVITY
  4. CELEXA [Concomitant]
     Indication: ANXIETY
  5. FOLIC ACID [Concomitant]
     Indication: VITAMIN SUPPLEMENTATION
  6. MULTI-VITAMIN [Concomitant]
     Indication: VITAMIN SUPPLEMENTATION
  7. HUMIRA [Suspect]
     Indication: CROHN'S DISEASE
     Dates: start: 20090101, end: 20110101
  8. AMBIEN [Concomitant]
     Indication: SLEEP DISORDER THERAPY

REACTIONS (5)
  - PANCREATIC ENZYMES INCREASED [None]
  - DIARRHOEA [None]
  - ARTHRALGIA [None]
  - ABDOMINAL PAIN [None]
  - MUSCLE SPASMS [None]
